FAERS Safety Report 15256411 (Version 1)
Quarter: 2018Q3

REPORT INFORMATION
  Report Type: Spontaneous
  Country: US (occurrence: US)
  Receive Date: 20180808
  Receipt Date: 20180808
  Transmission Date: 20181010
  Serious: Yes (Other)
  Sender: FDA-Public Use
  Company Number: US-AKORN PHARMACEUTICALS-2018AKN01092

PATIENT
  Sex: Male
  Weight: 52.61 kg

DRUGS (6)
  1. MYORISAN [Suspect]
     Active Substance: ISOTRETINOIN
     Indication: ACNE CYSTIC
     Dosage: 10 MG, EVERY OTHER DAY
     Dates: start: 20180725
  2. PREDNISONE. [Suspect]
     Active Substance: PREDNISONE
     Dosage: 60 MG, UNK
     Dates: start: 20180612, end: 2018
  3. MYORISAN [Suspect]
     Active Substance: ISOTRETINOIN
     Indication: ACNE CYSTIC
     Dosage: 20 MG, UNK
     Route: 048
     Dates: start: 201805, end: 20180612
  4. PREDNISONE. [Suspect]
     Active Substance: PREDNISONE
     Dosage: 40 MG, 1X/DAY
     Dates: start: 201805, end: 2018
  5. PREDNISONE. [Suspect]
     Active Substance: PREDNISONE
     Dosage: 40 MG, UNK
     Dates: start: 2018, end: 2018
  6. PREDNISONE. [Suspect]
     Active Substance: PREDNISONE
     Dosage: 20 MG, 1X/DAY
     Dates: start: 2018

REACTIONS (3)
  - Acne fulminans [Recovering/Resolving]
  - Insomnia [Unknown]
  - Irritability [Unknown]

NARRATIVE: CASE EVENT DATE: 2018
